FAERS Safety Report 9200563 (Version 1)
Quarter: 2013Q1

REPORT INFORMATION
  Report Type: Report from Study
  Country: US (occurrence: US)
  Receive Date: 20130329
  Receipt Date: 20130329
  Transmission Date: 20140127
  Serious: Yes (Hospitalization, Disabling, Other)
  Sender: FDA-Public Use
  Company Number: US-PFIZER INC-2005154755

PATIENT
  Age: 49 Year
  Sex: Female
  Weight: 81.65 kg

DRUGS (7)
  1. IBUPROFEN [Suspect]
     Indication: INFLAMMATION
     Dosage: 800 MG, 3X/DAY
     Route: 048
  2. ESTRADIOL [Concomitant]
     Indication: HORMONE REPLACEMENT THERAPY
     Dosage: UNK
     Dates: start: 1998
  3. FUROSEMIDE [Concomitant]
     Indication: FLUID REPLACEMENT
     Dosage: UNK
     Dates: start: 1990
  4. HYDROCODONE [Concomitant]
     Indication: PAIN
     Dosage: UNK
  5. DIAZEPAM [Concomitant]
     Indication: NERVOUSNESS
     Dosage: UNK
     Dates: start: 1995
  6. ATENOLOL [Concomitant]
     Indication: HYPERTENSION
     Dosage: UNK
     Dates: start: 1995
  7. POTASSIUM [Concomitant]
     Indication: MINERAL SUPPLEMENTATION
     Dosage: UNK
     Dates: start: 1990

REACTIONS (7)
  - Myocardial infarction [Recovered/Resolved]
  - Rotator cuff syndrome [Not Recovered/Not Resolved]
  - Hernia [Recovered/Resolved]
  - Diabetes mellitus [Not Recovered/Not Resolved]
  - Hypoaesthesia [Unknown]
  - Neuropathy peripheral [Unknown]
  - Abdominal discomfort [Recovering/Resolving]
